FAERS Safety Report 25471577 (Version 1)
Quarter: 2025Q2

REPORT INFORMATION
  Report Type: Spontaneous
  Country: US (occurrence: US)
  Receive Date: 20250624
  Receipt Date: 20250624
  Transmission Date: 20250716
  Serious: Yes (Other)
  Sender: SANOFI AVENTIS
  Company Number: US-SANOFI-02564596

PATIENT
  Age: 83 Year
  Sex: Male

DRUGS (1)
  1. LANTUS SOLOSTAR [Suspect]
     Active Substance: INSULIN GLARGINE
     Indication: Diabetes mellitus
     Dosage: 20 OR 18 UNITS IN THE MORNING AND THEN 22 UNITS IN THE EVENING, BID
     Route: 065
     Dates: start: 2022

REACTIONS (3)
  - Dementia Alzheimer^s type [Unknown]
  - Hypoacusis [Unknown]
  - Off label use [Unknown]

NARRATIVE: CASE EVENT DATE: 20220101
